FAERS Safety Report 8828719 (Version 1)
Quarter: 2012Q4

REPORT INFORMATION
  Report Type: Report from Study
  Country: DE (occurrence: DE)
  Receive Date: 20121008
  Receipt Date: 20121008
  Transmission Date: 20130627
  Serious: Yes (Other)
  Sender: FDA-Public Use
  Company Number: DE-INCYTE CORPORATION-2012IN001919

PATIENT
  Age: 50 Year
  Sex: Female
  Weight: 61 kg

DRUGS (3)
  1. INC424 [Suspect]
     Indication: MYELOFIBROSIS
     Dosage: 20 mg, bid
     Route: 048
     Dates: start: 20120807, end: 20120924
  2. GYNOKADIN [Concomitant]
     Dosage: UNK
     Dates: end: 20120920
  3. METOPROLOL [Concomitant]

REACTIONS (1)
  - Electrocardiogram QT prolonged [Not Recovered/Not Resolved]
